FAERS Safety Report 7044789-4 (Version None)
Quarter: 2010Q4

REPORT INFORMATION
  Report Type: 
  Country: None (occurrence: None)
  Receive Date: 20101014
  Receipt Date: 20100930
  Transmission Date: 20110411
  Serious: Yes (Other)
  Sender: FDA-Public Use
  Company Number: PHHY2010AU65529

PATIENT
  Sex: Male

DRUGS (1)
  1. CLOZARIL [Suspect]

REACTIONS (1)
  - ELECTROCARDIOGRAM ABNORMAL [None]
